FAERS Safety Report 7807443-4 (Version None)
Quarter: 2011Q4

REPORT INFORMATION
  Report Type: 
  Country: None (occurrence: None)
  Receive Date: 20111011
  Receipt Date: 20110928
  Transmission Date: 20120403
  Serious: Yes (Other)
  Sender: FDA-Public Use
  Company Number: PHHY2011DE86640

PATIENT

DRUGS (1)
  1. GILENYA [Suspect]
     Indication: MULTIPLE SCLEROSIS
     Dosage: 0.5 MG/DAY
     Route: 048
     Dates: start: 20110101, end: 20110101

REACTIONS (1)
  - CEREBRAL HAEMORRHAGE [None]
